FAERS Safety Report 22375620 (Version 1)
Quarter: 2023Q2

REPORT INFORMATION
  Report Type: Spontaneous
  Country: IL (occurrence: IL)
  Receive Date: 20230527
  Receipt Date: 20230527
  Transmission Date: 20230721
  Serious: Yes (Hospitalization, Other)
  Sender: FDA-Public Use
  Company Number: IL-SUN PHARMACEUTICAL INDUSTRIES LTD-2023R1-389209

PATIENT
  Age: 54 Year
  Sex: Male

DRUGS (4)
  1. AMIODARONE [Suspect]
     Active Substance: AMIODARONE
     Indication: Ventricular fibrillation
     Dosage: UNK
     Route: 065
  2. QUINIDINE [Suspect]
     Active Substance: QUINIDINE
     Indication: Ventricular fibrillation
     Dosage: UNK
     Route: 065
  3. MEXILETINE [Suspect]
     Active Substance: MEXILETINE
     Indication: Ventricular fibrillation
     Dosage: UNK
     Route: 065
  4. PROCAINAMIDE HYDROCHLORIDE [Suspect]
     Active Substance: PROCAINAMIDE HYDROCHLORIDE
     Indication: Ventricular fibrillation
     Dosage: UNK
     Route: 065

REACTIONS (2)
  - Disease recurrence [Unknown]
  - Drug ineffective [Unknown]
